FAERS Safety Report 9972999 (Version 2)
Quarter: 2014Q2

REPORT INFORMATION
  Report Type: Spontaneous
  Country: US (occurrence: US)
  Receive Date: 20140306
  Receipt Date: 20140408
  Transmission Date: 20141212
  Serious: No
  Sender: FDA-Public Use
  Company Number: US-PFIZER INC-2014062569

PATIENT
  Age: 48 Year
  Sex: Male
  Weight: 68.03 kg

DRUGS (7)
  1. CHANTIX [Suspect]
     Indication: SMOKING CESSATION THERAPY
     Dosage: 0.5 MG, 1X/DAY
     Route: 048
     Dates: start: 20140228, end: 2014
  2. CHANTIX [Suspect]
     Dosage: UNK
     Route: 048
     Dates: start: 2014
  3. ADVAIR [Concomitant]
     Dosage: FLUTICASONE PROPIONATE250/ SALMETEROL XINAFOATE 50, 1 PUFF BID
  4. ALBUTEROL HFA [Concomitant]
     Dosage: 2-4 PUFFS Q 6 HR AS NECESSARY
  5. DICYCLOMINE [Concomitant]
     Indication: IRRITABLE BOWEL SYNDROME
     Dosage: UNK
  6. NAPROXEN [Concomitant]
     Dosage: 500 MG, BID PRN
     Route: 048
  7. BENTYL [Concomitant]
     Dosage: 20 MG, 4X1 DAY PRN
     Route: 048

REACTIONS (6)
  - Insomnia [Unknown]
  - Abnormal dreams [Not Recovered/Not Resolved]
  - Drug ineffective [Unknown]
  - Feeling of relaxation [Unknown]
  - Therapeutic response changed [Unknown]
  - Feeling abnormal [Unknown]
